FAERS Safety Report 5352804-9 (Version None)
Quarter: 2007Q2

REPORT INFORMATION
  Report Type: 
  Country: None (occurrence: None)
  Receive Date: 20070518
  Receipt Date: 20070322
  Transmission Date: 20071010
  Serious: No
  Sender: FDA-Public Use
  Company Number: TPA2007A00669

PATIENT
  Age: 40 Year
  Sex: Male
  Weight: 77.1115 kg

DRUGS (1)
  1. ROZEREM [Suspect]
     Indication: INITIAL INSOMNIA
     Dosage: 8 MG, HS, PER ORAL
     Route: 048
     Dates: start: 20070316

REACTIONS (1)
  - INITIAL INSOMNIA [None]
